FAERS Safety Report 18228557 (Version 11)
Quarter: 2021Q3

REPORT INFORMATION
  Report Type: Spontaneous
  Country: IN (occurrence: IN)
  Receive Date: 20200903
  Receipt Date: 20210906
  Transmission Date: 20211014
  Serious: Yes (Other)
  Sender: FDA-Public Use
  Company Number: IN-PFIZER INC-2019342257

PATIENT
  Age: 79 Year
  Sex: Female

DRUGS (18)
  1. PAN D [DOMPERIDONE;PANTOPRAZOLE SODIUM SESQUIHYDRATE] [Concomitant]
     Active Substance: DOMPERIDONE\PANTOPRAZOLE SODIUM
     Dosage: 1 DF, 1X/DAY (1?0?0)
  2. PAN D [DOMPERIDONE;PANTOPRAZOLE SODIUM SESQUIHYDRATE] [Concomitant]
     Active Substance: DOMPERIDONE\PANTOPRAZOLE SODIUM
     Dosage: 1 DF, ALTERNATE DAY (1?0?0 ONCE IN 2 DAYS)
  3. CCM [Concomitant]
     Dosage: 1 DF, 1X/DAY
  4. ULTRACET SEMI [Concomitant]
     Active Substance: ACETAMINOPHEN\TRAMADOL HYDROCHLORIDE
     Dosage: 20 DF, AS NEEDED
  5. CCM [Concomitant]
     Dosage: 1 DF, ALTERNATE DAY (0?1?0 (ALT DAY)
  6. CCM [Concomitant]
     Dosage: UNK, ALTERNATE DAY(0?0?1 ONCE IN 2 DAYS)
  7. PALBACE [Suspect]
     Active Substance: PALBOCICLIB
     Dosage: 100 MG, 1X/DAY (0?0?1)
     Route: 048
     Dates: start: 20201113, end: 20201130
  8. PALBACE [Suspect]
     Active Substance: PALBOCICLIB
     Dosage: 100 MG, 1X/DAY (0?0?1)
     Route: 048
     Dates: start: 20210225
  9. PALBACE [Suspect]
     Active Substance: PALBOCICLIB
     Dosage: 100 MG, 1X/DAY
     Route: 048
     Dates: start: 20190807
  10. PALBACE [Suspect]
     Active Substance: PALBOCICLIB
     Dosage: 100 MG, 1X/DAY (0?0?1)
     Route: 048
     Dates: start: 20210120, end: 20210209
  11. PALBACE [Suspect]
     Active Substance: PALBOCICLIB
     Dosage: 100 MG, 1X/DAY (CYCLE 2)
     Route: 048
     Dates: start: 20200623, end: 20200713
  12. PALBACE [Suspect]
     Active Substance: PALBOCICLIB
     Dosage: 100 MG, 1X/DAY (14TH CYCLE)
     Route: 048
     Dates: start: 20201016, end: 20201103
  13. LETROZOLE. [Concomitant]
     Active Substance: LETROZOLE
     Dosage: 2.5 MG, 1X/DAY (0?0?1)
  14. LIVOGEN [FERROUS ASCORBATE;FOLIC ACID] [Concomitant]
     Dosage: 1 DF, 1X/DAY (0?0?1)
  15. PALBACE [Suspect]
     Active Substance: PALBOCICLIB
     Indication: BREAST CANCER METASTATIC
     Dosage: 100 MG
     Dates: start: 201907
  16. PALBACE [Suspect]
     Active Substance: PALBOCICLIB
     Dosage: 100 MG, 1X/DAY
     Route: 048
     Dates: start: 20190808
  17. ULTRACET SEMI [Concomitant]
     Active Substance: ACETAMINOPHEN\TRAMADOL HYDROCHLORIDE
     Indication: PAIN
     Dosage: 1 DF
  18. A TO Z [Concomitant]
     Active Substance: MINERALS\VITAMINS
     Dosage: UNK, DAILY (0?1?0)

REACTIONS (13)
  - Asthenia [Unknown]
  - Blood cholesterol increased [Unknown]
  - Abdominal discomfort [Recovered/Resolved]
  - Platelet count decreased [Unknown]
  - Dizziness [Recovered/Resolved]
  - Haemoglobin decreased [Unknown]
  - Neutrophil percentage decreased [Unknown]
  - Blood creatinine increased [Unknown]
  - Low density lipoprotein increased [Unknown]
  - Dyspnoea exertional [Unknown]
  - Lymphocyte percentage increased [Unknown]
  - Back pain [Unknown]
  - Arthralgia [Unknown]

NARRATIVE: CASE EVENT DATE: 20200818
